FAERS Safety Report 9345062 (Version 1)
Quarter: 2013Q2

REPORT INFORMATION
  Report Type: Spontaneous
  Country: ES (occurrence: ES)
  Receive Date: 20130612
  Receipt Date: 20130612
  Transmission Date: 20140414
  Serious: Yes (Hospitalization)
  Sender: FDA-Public Use
  Company Number: ES-009507513-1305ESP016885

PATIENT
  Age: 56 Year
  Sex: Female

DRUGS (1)
  1. INTRONA [Suspect]
     Indication: MALIGNANT MELANOMA
     Dosage: 15 MILLION IU, QD, ON MONDAYS, WEDNESDAYS AND FRIDAYS

REACTIONS (3)
  - Hospitalisation [Unknown]
  - Vomiting [Recovered/Resolved]
  - Expired drug administered [Unknown]
